FAERS Safety Report 9658084 (Version 1)
Quarter: 2013Q4

REPORT INFORMATION
  Report Type: Spontaneous
  Country: US (occurrence: US)
  Receive Date: 20131030
  Receipt Date: 20131030
  Transmission Date: 20140711
  Serious: No
  Sender: FDA-Public Use
  Company Number: US-TEVA-440098USA

PATIENT
  Sex: Male

DRUGS (1)
  1. QNASL [Suspect]

REACTIONS (2)
  - Nasal congestion [Unknown]
  - Device malfunction [Unknown]
